FAERS Safety Report 12891789 (Version 2)
Quarter: 2016Q4

REPORT INFORMATION
  Report Type: Spontaneous
  Country: US (occurrence: US)
  Receive Date: 20161028
  Receipt Date: 20161222
  Transmission Date: 20170207
  Serious: No
  Sender: FDA-Public Use
  Company Number: US-BIOGEN-2016BI00309217

PATIENT
  Sex: Female

DRUGS (1)
  1. TECFIDERA [Suspect]
     Active Substance: DIMETHYL FUMARATE
     Indication: MULTIPLE SCLEROSIS
     Route: 065
     Dates: start: 20131125, end: 20140103

REACTIONS (3)
  - Amnesia [Not Recovered/Not Resolved]
  - Muscle spasticity [Recovered/Resolved]
  - Musculoskeletal disorder [Not Recovered/Not Resolved]
